FAERS Safety Report 4833273-1 (Version None)
Quarter: 2005Q4

REPORT INFORMATION
  Report Type: 
  Country: None (occurrence: None)
  Receive Date: 20051121
  Receipt Date: 20051003
  Transmission Date: 20060501
  Serious: Yes (Hospitalization)
  Sender: FDA-Public Use
  Company Number: DE-BRISTOL-MYERS SQUIBB COMPANY-13177928

PATIENT
  Age: 43 Year
  Sex: Female

DRUGS (1)
  1. ABILIFY [Suspect]
     Indication: ANXIETY DISORDER
     Dosage: REDUCED TO 15 MG DAILY DUE TO THE EVENT
     Route: 048
     Dates: start: 20050805

REACTIONS (5)
  - EXTRAPYRAMIDAL DISORDER [None]
  - PARKINSONISM [None]
  - RESTLESSNESS [None]
  - SALIVARY HYPERSECRETION [None]
  - TRISMUS [None]
